FAERS Safety Report 8588039-6 (Version None)
Quarter: 2012Q3

REPORT INFORMATION
  Report Type: 
  Country: None (occurrence: None)
  Receive Date: 20120731
  Receipt Date: 20120716
  Transmission Date: 20120928
  Serious: Yes (Hospitalization)
  Sender: FDA-Public Use
  Company Number: ALK_02756_2012

PATIENT
  Age: 21 Year
  Sex: Male

DRUGS (2)
  1. CLONIDINE [Concomitant]
  2. VIVITROL [Suspect]
     Indication: DRUG DEPENDENCE
     Dosage: 380 MG 1X/MONTH INTRAMUSCULAR)
     Route: 030

REACTIONS (3)
  - MYOCARDIAL INFARCTION [None]
  - EJECTION FRACTION DECREASED [None]
  - OVERDOSE [None]
